FAERS Safety Report 25552567 (Version 1)
Quarter: 2025Q3

REPORT INFORMATION
  Report Type: Report from Study
  Country: GB (occurrence: GB)
  Receive Date: 20250715
  Receipt Date: 20250715
  Transmission Date: 20251021
  Serious: Yes (Hospitalization)
  Sender: ABBVIE
  Company Number: GB-ABBVIE-6342497

PATIENT
  Age: 15 Year
  Sex: Female

DRUGS (2)
  1. HUMIRA [Suspect]
     Active Substance: ADALIMUMAB
     Indication: Crohn^s disease
     Dosage: 2 PRE-FILLED DISPOSABLE INJECTION
     Route: 058
     Dates: end: 20250623
  2. HUMIRA [Suspect]
     Active Substance: ADALIMUMAB
     Dosage: 2 PRE-FILLED DISPOSABLE INJECTION
     Route: 058

REACTIONS (2)
  - Intestinal operation [Unknown]
  - Inappropriate schedule of product administration [Unknown]

NARRATIVE: CASE EVENT DATE: 20250101
